FAERS Safety Report 6595786-4 (Version None)
Quarter: 2010Q1

REPORT INFORMATION
  Report Type: 
  Country: None (occurrence: None)
  Receive Date: 20100223
  Receipt Date: 20100105
  Transmission Date: 20100710
  Serious: Yes (Death)
  Sender: FDA-Public Use
  Company Number: US-TYCO HEALTHCARE/MALLINCKRODT-T201000490

PATIENT
  Age: 50 Year
  Sex: Female

DRUGS (8)
  1. ACETAMINOPHEN AND HYDROCODONE BITARTRATE [Suspect]
     Route: 048
  2. UNKNOWN DRUG [Suspect]
     Route: 048
  3. ACETAMINOPHEN [Suspect]
     Route: 048
  4. LORAZEPAM [Suspect]
     Route: 048
  5. GABAPENTIN [Suspect]
     Route: 048
  6. HYDROXYZINE [Suspect]
     Route: 048
  7. CYCLIC ANTIDEPRESSANT, UNKNOWN [Suspect]
     Route: 048
  8. HYOSCYAMINE [Suspect]
     Route: 048

REACTIONS (1)
  - COMPLETED SUICIDE [None]
